FAERS Safety Report 20724242 (Version 1)
Quarter: 2022Q2

REPORT INFORMATION
  Report Type: Spontaneous
  Country: ES (occurrence: ES)
  Receive Date: 20220419
  Receipt Date: 20220419
  Transmission Date: 20220720
  Serious: Yes (Hospitalization, Other)
  Sender: FDA-Public Use
  Company Number: ES-RISINGPHARMA-ES-2022RISLIT00401

PATIENT
  Age: 43 Year
  Sex: Female

DRUGS (1)
  1. FENOFIBRATE [Suspect]
     Active Substance: FENOFIBRATE
     Indication: Hypertriglyceridaemia
     Route: 065

REACTIONS (3)
  - Eosinophilia [Unknown]
  - Pulmonary toxicity [Recovered/Resolved]
  - Hepatotoxicity [Recovered/Resolved]
